FAERS Safety Report 6787672-1 (Version None)
Quarter: 2010Q2

REPORT INFORMATION
  Report Type: 
  Country: None (occurrence: None)
  Receive Date: 20100623
  Receipt Date: 20070905
  Transmission Date: 20101027
  Serious: No
  Sender: FDA-Public Use
  Company Number: US-PFIZER INC-2007047186

PATIENT
  Sex: Female
  Weight: 78.2 kg

DRUGS (9)
  1. SUTENT [Suspect]
     Indication: GLIOBLASTOMA MULTIFORME
     Route: 048
     Dates: start: 20070509, end: 20070524
  2. DEXAMETHASONE ACETATE [Concomitant]
  3. ALTACE [Concomitant]
  4. TOPROL-XL [Concomitant]
  5. INSULIN [Concomitant]
     Dosage: 30 UNITS DAILY
  6. CRESTOR [Concomitant]
  7. TOLAZAMIDE [Concomitant]
  8. PREVACID [Concomitant]
  9. REQUIP [Concomitant]

REACTIONS (1)
  - NO ADVERSE EVENT [None]
